FAERS Safety Report 7386544-1 (Version None)
Quarter: 2011Q1

REPORT INFORMATION
  Report Type: 
  Country: None (occurrence: None)
  Receive Date: 20110331
  Receipt Date: 20110325
  Transmission Date: 20110831
  Serious: Yes (Death)
  Sender: FDA-Public Use
  Company Number: IT-ROCHE-746712

PATIENT
  Sex: Male
  Weight: 81 kg

DRUGS (9)
  1. CACIT D3 [Concomitant]
  2. FOLIC ACID [Concomitant]
     Dates: start: 20100607
  3. OMEPRAZOLE [Concomitant]
  4. ZOFENOPRIL CALCIUM [Concomitant]
     Indication: HYPERTENSION
  5. BEVACIZUMAB [Suspect]
     Indication: NON-SMALL CELL LUNG CANCER
     Dosage: FREQUENCY REPORTED AS DAY ONE EVERY 21 DAYS
     Route: 042
     Dates: start: 20100615
  6. VITAMIN B-12 [Concomitant]
     Dates: start: 20100607
  7. PEMETREXED [Suspect]
     Indication: NON-SMALL CELL LUNG CANCER
     Dosage: DOSE REPORTED AS 500 MG/M2, FREQUENCY REPORTED AS DAY 1 EVERY 21 DAYS
     Route: 042
     Dates: start: 20100615
  8. CISPLATIN [Suspect]
     Indication: NON-SMALL CELL LUNG CANCER
     Dosage: DOSE REPORTED AS 75 MG/M2, FREQUENCY REPORTED AS DAY 1 EVERY 21 DAYS
     Route: 042
     Dates: start: 20100615
  9. DEXAMETHASONE [Concomitant]
     Dates: start: 20100614

REACTIONS (1)
  - SUDDEN DEATH [None]
